FAERS Safety Report 4441273-9 (Version None)
Quarter: 2004Q3

REPORT INFORMATION
  Report Type: 
  Country: None (occurrence: None)
  Receive Date: 20040728
  Receipt Date: 20040505
  Transmission Date: 20050211
  Serious: No
  Sender: FDA-Public Use
  Company Number: USA040566792

PATIENT
  Age: 33 Year
  Sex: Female
  Weight: 109 kg

DRUGS (2)
  1. STRATTERA [Suspect]
     Dosage: 40 MG/ 2 DAY
     Dates: start: 20040429, end: 20040502
  2. WELLBUTRIN [Concomitant]

REACTIONS (5)
  - ANXIETY [None]
  - EYELID DISORDER [None]
  - HALLUCINATION [None]
  - INSOMNIA [None]
  - STRESS SYMPTOMS [None]
